FAERS Safety Report 6059042-5 (Version None)
Quarter: 2009Q1

REPORT INFORMATION
  Report Type: 
  Country: None (occurrence: None)
  Receive Date: 20090130
  Receipt Date: 20090119
  Transmission Date: 20090719
  Serious: Yes (Hospitalization)
  Sender: FDA-Public Use
  Company Number: B0554778A

PATIENT
  Age: 32 Year
  Sex: Female

DRUGS (6)
  1. NIMBEX [Suspect]
     Route: 042
     Dates: start: 20071127, end: 20071127
  2. AUGMENTIN '125' [Suspect]
     Indication: ANTIBIOTIC THERAPY
     Route: 042
     Dates: start: 20071127
  3. PERFALGAN [Suspect]
     Route: 042
     Dates: start: 20071127
  4. SUFENTANIL [Suspect]
     Route: 042
     Dates: start: 20071127, end: 20071127
  5. KETOPROFEN [Suspect]
     Route: 042
     Dates: start: 20071127
  6. PROPOFOL [Concomitant]
     Route: 042
     Dates: start: 20071127

REACTIONS (3)
  - ANAPHYLACTIC SHOCK [None]
  - ANGIOEDEMA [None]
  - RASH [None]
